FAERS Safety Report 21812987 (Version 1)
Quarter: 2023Q1

REPORT INFORMATION
  Report Type: Spontaneous
  Country: US (occurrence: None)
  Receive Date: 20230102
  Receipt Date: 20230102
  Transmission Date: 20230417
  Serious: Yes (Disabling, Other)
  Sender: FDA-Public Use
  Company Number: None

PATIENT
  Age: 26 Year
  Sex: Female
  Weight: 76.5 kg

DRUGS (8)
  1. DEXAMETHASONE [Suspect]
     Active Substance: DEXAMETHASONE
     Indication: Bronchitis
     Dosage: OTHER QUANTITY : 1 TABLET(S);?
     Route: 048
  2. EFFEXOR [Concomitant]
     Active Substance: VENLAFAXINE HYDROCHLORIDE
  3. PROPRANOLOL HYDROCHLORIDE [Concomitant]
     Active Substance: PROPRANOLOL HYDROCHLORIDE
  4. ALBUTEROL [Concomitant]
     Active Substance: ALBUTEROL
  5. DOXYCYCLINE [Concomitant]
     Active Substance: DOXYCYCLINE
  6. FAMOTIDINE [Concomitant]
     Active Substance: FAMOTIDINE
  7. Prenatal vitamins with Folic acid [Concomitant]
  8. KRILL OIL [Concomitant]
     Active Substance: DIETARY SUPPLEMENT\KRILL OIL

REACTIONS (11)
  - Tremor [None]
  - Muscle tightness [None]
  - Gait disturbance [None]
  - Myalgia [None]
  - Erythema [None]
  - Feeling hot [None]
  - Hyperhidrosis [None]
  - Insomnia [None]
  - Abdominal discomfort [None]
  - Diarrhoea [None]
  - Burning sensation [None]

NARRATIVE: CASE EVENT DATE: 20230101
